FAERS Safety Report 12738901 (Version 2)
Quarter: 2016Q4

REPORT INFORMATION
  Report Type: Report from Study
  Country: US (occurrence: US)
  Receive Date: 20160913
  Receipt Date: 20161024
  Transmission Date: 20170207
  Serious: Yes (Death, Hospitalization, Other)
  Sender: FDA-Public Use
  Company Number: US-JNJFOC-20160410206

PATIENT
  Age: 83 Year
  Sex: Male
  Weight: 64 kg

DRUGS (5)
  1. IMBRUVICA [Suspect]
     Active Substance: IBRUTINIB
     Indication: CHRONIC LYMPHOCYTIC LEUKAEMIA
     Route: 048
     Dates: start: 20160308, end: 20160308
  2. FISH OIL [Concomitant]
     Active Substance: FISH OIL
     Route: 065
     Dates: start: 20160215
  3. VANCOMYCIN [Suspect]
     Active Substance: VANCOMYCIN
     Indication: PRODUCT USED FOR UNKNOWN INDICATION
  4. MECLIZINE [Concomitant]
     Active Substance: MECLIZINE HYDROCHLORIDE
     Route: 065
     Dates: start: 20151216
  5. PANTOPRAZOLE [Concomitant]
     Active Substance: PANTOPRAZOLE SODIUM
     Route: 065
     Dates: start: 20160127

REACTIONS (7)
  - Drug hypersensitivity [Unknown]
  - End stage renal disease [Fatal]
  - Disease progression [Fatal]
  - Vomiting [Unknown]
  - Cardio-respiratory arrest [Unknown]
  - Pulmonary oedema [Unknown]
  - Bladder transitional cell carcinoma recurrent [Fatal]

NARRATIVE: CASE EVENT DATE: 20160309
